FAERS Safety Report 10612743 (Version 1)
Quarter: 2014Q4

REPORT INFORMATION
  Report Type: Spontaneous
  Country: NL (occurrence: NL)
  Receive Date: 20141127
  Receipt Date: 20141127
  Transmission Date: 20150529
  Serious: Yes (Hospitalization)
  Sender: FDA-Public Use
  Company Number: NL-ASTRAZENECA-2014SE88447

PATIENT
  Age: 25603 Day
  Sex: Female

DRUGS (6)
  1. BUDESONIDE. [Suspect]
     Active Substance: BUDESONIDE
     Indication: DIARRHOEA
     Route: 048
     Dates: start: 201411, end: 20141113
  2. BUDESONIDE. [Suspect]
     Active Substance: BUDESONIDE
     Indication: ABDOMINAL PAIN
     Route: 048
     Dates: start: 201411, end: 20141113
  3. MAGNESIUMHYDROXIDE [Concomitant]
     Route: 048
     Dates: start: 2014
  4. TEMAZEPAM. [Concomitant]
     Active Substance: TEMAZEPAM
     Route: 048
     Dates: start: 2013
  5. BUDESONIDE. [Suspect]
     Active Substance: BUDESONIDE
     Indication: COLITIS
     Route: 048
     Dates: start: 201411, end: 20141113
  6. CITALOPRAM [Concomitant]
     Active Substance: CITALOPRAM HYDROBROMIDE
     Route: 048
     Dates: start: 2013

REACTIONS (1)
  - Pancreatitis [Recovering/Resolving]

NARRATIVE: CASE EVENT DATE: 20141111
